FAERS Safety Report 6782160-0 (Version None)
Quarter: 2010Q2

REPORT INFORMATION
  Report Type: 
  Country: None (occurrence: None)
  Receive Date: 20100618
  Receipt Date: 20100618
  Transmission Date: 20101027
  Serious: Yes (Hospitalization)
  Sender: FDA-Public Use
  Company Number: None

PATIENT
  Sex: Female
  Weight: 89 kg

DRUGS (2)
  1. CARBOPLATIN [Suspect]
     Dosage: 517 MG
  2. TAXOL [Suspect]
     Dosage: 350 MG

REACTIONS (3)
  - ADVERSE EVENT [None]
  - ANXIETY [None]
  - SOCIAL PROBLEM [None]
